FAERS Safety Report 5612702-X (Version None)
Quarter: 2008Q1

REPORT INFORMATION
  Report Type: 
  Country: None (occurrence: None)
  Receive Date: 20080204
  Receipt Date: 20080124
  Transmission Date: 20080703
  Serious: Yes (Life-Threatening)
  Sender: FDA-Public Use
  Company Number: FR-BAXTER-2007BH008903

PATIENT
  Age: 24 Year
  Sex: Female
  Weight: 36 kg

DRUGS (5)
  1. GAMMAGARD LIQUID [Suspect]
     Indication: HYPOGAMMAGLOBULINAEMIA
     Dosage: DOSE UNIT:UNKNOWN
     Route: 042
     Dates: start: 20070608, end: 20070608
  2. PROGRAF [Concomitant]
     Indication: GRAFT VERSUS HOST DISEASE
     Route: 048
     Dates: start: 20070308
  3. VALACYCLOVIR [Concomitant]
     Indication: HYPOGAMMAGLOBULINAEMIA
     Route: 048
     Dates: start: 20050113
  4. ORACILLINE [Concomitant]
     Indication: PROPHYLAXIS
     Dosage: DOSE UNIT:
     Route: 048
     Dates: start: 20050216
  5. PREDNISOLONE [Concomitant]
     Indication: GRAFT VERSUS HOST DISEASE
     Route: 048
     Dates: start: 20070131, end: 20070725

REACTIONS (1)
  - ANAPHYLACTIC SHOCK [None]
